FAERS Safety Report 18265643 (Version 1)
Quarter: 2020Q3

REPORT INFORMATION
  Report Type: Spontaneous
  Country: US (occurrence: US)
  Receive Date: 20200914
  Receipt Date: 20200914
  Transmission Date: 20201103
  Serious: No
  Sender: FDA-Public Use
  Company Number: US-JIANGSU HENGRUI MEDICINE CO., LTD.-2090697

PATIENT
  Age: 57 Year
  Sex: Male

DRUGS (5)
  1. BETA BLOCKERS [Concomitant]
     Active Substance: UNSPECIFIED INGREDIENT
  2. CYCLOPHOSPHAMIDE FOR INJECTION USP, 500 MG, 1 G AND 2 G PER SINGLE?DOS [Suspect]
     Active Substance: CYCLOPHOSPHAMIDE
     Indication: CHEMOTHERAPY
  3. PREDNISONE. [Suspect]
     Active Substance: PREDNISONE
  4. ACEI [Concomitant]
  5. FLUDARABINE [Suspect]
     Active Substance: FLUDARABINE PHOSPHATE

REACTIONS (1)
  - Infection masked [Unknown]
